FAERS Safety Report 10206859 (Version 1)
Quarter: 2014Q2

REPORT INFORMATION
  Report Type: Report from Study
  Country: US (occurrence: US)
  Receive Date: 20140530
  Receipt Date: 20140530
  Transmission Date: 20141212
  Serious: Yes (Hospitalization, Other)
  Sender: FDA-Public Use
  Company Number: PHEH2014US010872

PATIENT
  Sex: Female

DRUGS (2)
  1. CLOZARIL [Suspect]
  2. CLOZARIL [Suspect]
     Dosage: 500 MG, DAILY

REACTIONS (1)
  - Infection [Unknown]
